FAERS Safety Report 23090013 (Version 2)
Quarter: 2023Q4

REPORT INFORMATION
  Report Type: Spontaneous
  Country: JP (occurrence: JP)
  Receive Date: 20231020
  Receipt Date: 20231109
  Transmission Date: 20240110
  Serious: Yes (Other)
  Sender: FDA-Public Use
  Company Number: JP-PFIZER INC-202300332574

PATIENT
  Age: 8 Year
  Sex: Female

DRUGS (3)
  1. SOLU-MEDROL [Suspect]
     Active Substance: METHYLPREDNISOLONE SODIUM SUCCINATE
     Dosage: 50 MG
     Route: 041
     Dates: start: 19950908
  2. ANHIBA [Concomitant]
     Active Substance: ACETAMINOPHEN
     Dosage: UNK
     Route: 054
  3. GLYCERIN [Concomitant]
     Active Substance: GLYCERIN
     Dosage: 16 MG
     Route: 041

REACTIONS (3)
  - Type I hypersensitivity [Recovered/Resolved]
  - Urticaria [Recovered/Resolved]
  - Drug eruption [Recovered/Resolved]
